FAERS Safety Report 7195476-3 (Version None)
Quarter: 2010Q4

REPORT INFORMATION
  Report Type: 
  Country: None (occurrence: None)
  Receive Date: 20101223
  Receipt Date: 20101002
  Transmission Date: 20110411
  Serious: No
  Sender: FDA-Public Use
  Company Number: US-AMGEN-KDL442667

PATIENT

DRUGS (2)
  1. ENBREL [Suspect]
     Indication: PSORIATIC ARTHROPATHY
     Dosage: UNK UNK, UNK
     Dates: start: 20101002
  2. ENBREL [Suspect]
     Indication: PSORIASIS

REACTIONS (2)
  - AXILLARY PAIN [None]
  - DRUG ADMINISTERED AT INAPPROPRIATE SITE [None]
